FAERS Safety Report 11781121 (Version 5)
Quarter: 2016Q4

REPORT INFORMATION
  Report Type: Spontaneous
  Country: US (occurrence: US)
  Receive Date: 20151126
  Receipt Date: 20161107
  Transmission Date: 20170206
  Serious: No
  Sender: FDA-Public Use
  Company Number: US-PFIZER INC-2015390993

PATIENT
  Age: 66 Year
  Sex: Female
  Weight: 86 kg

DRUGS (36)
  1. PRISTIQ EXTENDED-RELEASE [Concomitant]
     Active Substance: DESVENLAFAXINE SUCCINATE
     Indication: ASTHENIA
     Dosage: 100 MG, DAILY
     Route: 048
  2. TRAZODONE [Concomitant]
     Active Substance: TRAZODONE HYDROCHLORIDE
     Indication: DEPRESSION
     Dosage: 50 MG, 2X/DAY(AT BEDTIME)
  3. MONTELUK [Concomitant]
     Indication: HYPERSENSITIVITY
     Dosage: 10 MG, 1X/DAY (AT NIGHT)
     Route: 048
     Dates: start: 20160615
  4. VITEYES [Concomitant]
     Dosage: UNK
  5. ONDANSETRON HCL [Concomitant]
     Active Substance: ONDANSETRON HYDROCHLORIDE
     Indication: VOMITING
     Dosage: 4 MG, UNK
  6. LYRICA [Suspect]
     Active Substance: PREGABALIN
     Dosage: 100 MG, 2X/DAY
     Route: 048
  7. RITALIN [Concomitant]
     Active Substance: METHYLPHENIDATE HYDROCHLORIDE
     Indication: ATTENTION DEFICIT/HYPERACTIVITY DISORDER
     Dosage: 10 MG PILL BY MOUTH ONE IN AM A ND 1/2 IN AFTERNOON)
     Route: 048
  8. CALCIUM MAGNESIUM + VITAMIN D3 [Concomitant]
     Dosage: UNK (CALCIUM 1000 MG, COLECALCIFEROL 400 IU, MAGNESIUM 500 MG)
  9. MIRALAX [Concomitant]
     Active Substance: POLYETHYLENE GLYCOL 3350
     Dosage: UNK UNK, DAILY (1 CP)
  10. COLLAGEN HYDROLYSATE [Concomitant]
  11. PROGESTERONE. [Concomitant]
     Active Substance: PROGESTERONE
     Indication: HOT FLUSH
     Dosage: 100 MG, 1X/DAY
     Route: 048
  12. BUSPIRONE [Concomitant]
     Active Substance: BUSPIRONE HYDROCHLORIDE
     Indication: DEPRESSION
     Dosage: 200 MG, 2X/DAY (IN THE MORNING AND IN THE NIGHT)
     Route: 048
  13. NP THYROID [Concomitant]
     Active Substance: LEVOTHYROXINE\LIOTHYRONINE
     Indication: HYPOTHYROIDISM
     Dosage: 60 MG, 1X/DAY (MORNING)
     Route: 048
  14. ALOE VERA [Concomitant]
     Active Substance: ALOE VERA LEAF
     Dosage: UNK
  15. OXYCODONE ACETAMINOPHEN [Concomitant]
     Active Substance: ACETAMINOPHEN\OXYCODONE HYDROCHLORIDE
     Indication: RAPID EYE MOVEMENTS SLEEP ABNORMAL
     Dosage: UNK
  16. ARMOUR THYROID [Concomitant]
     Active Substance: THYROID, PORCINE
     Indication: THYROID DISORDER
     Dosage: 60 MG, 1X/DAY, IN THE MORNING(1 TAB AM WHEN I WAKE UP)
     Route: 048
  17. MUPIROCIN. [Concomitant]
     Active Substance: MUPIROCIN
     Indication: EPISTAXIS
     Dosage: 2% OINTMENT PUT FIFTH OF TUBE IN SALINE SOLUTION
  18. BUSPIRONE [Concomitant]
     Active Substance: BUSPIRONE HYDROCHLORIDE
     Indication: CEREBROVASCULAR ACCIDENT
  19. VITAMIN B12 [Concomitant]
     Active Substance: CYANOCOBALAMIN
     Dosage: UNK
  20. SINGULAIR [Concomitant]
     Active Substance: MONTELUKAST SODIUM
     Indication: HYPERSENSITIVITY
     Dosage: 10 MG, 1X/DAY (AT NIGHT)
  21. PRISTIQ EXTENDED-RELEASE [Concomitant]
     Active Substance: DESVENLAFAXINE SUCCINATE
     Indication: CEREBROVASCULAR ACCIDENT
     Dosage: 50 MG, 1X/DAY
     Route: 048
     Dates: start: 2005
  22. FLUTICASONE [Concomitant]
     Active Substance: FLUTICASONE\FLUTICASONE PROPIONATE
     Indication: NASAL CONGESTION
     Dosage: 50 UG, AS NEEDED
     Route: 045
  23. TRAZODONE [Concomitant]
     Active Substance: TRAZODONE HYDROCHLORIDE
     Indication: NEURALGIA
     Dosage: 30 MG, 2X/DAY
     Route: 048
  24. TRAZODONE [Concomitant]
     Active Substance: TRAZODONE HYDROCHLORIDE
     Indication: INSOMNIA
  25. OMEGA 3 FISH OILS [Concomitant]
     Active Substance: OMEGA-3 FATTY ACIDS
     Dosage: 120 MG, 4X/DAY
  26. BABY ASPIRIN [Concomitant]
     Active Substance: ASPIRIN
     Dosage: UNK UNK, 1X/DAY (AT NIGHT)
  27. LYRICA [Suspect]
     Active Substance: PREGABALIN
     Indication: ARTHRITIS
     Dosage: 200 MG, DAILY, 50MG IN THE MORNING AND 150MG AT NIGHT
     Route: 048
     Dates: start: 2015
  28. LYRICA [Suspect]
     Active Substance: PREGABALIN
     Indication: PAIN
     Dosage: 200 MG, DAILY, 50MG IN THE MORNING AND 150MG AT NIGHT
     Route: 048
     Dates: start: 2015
  29. MUPIROCIN. [Concomitant]
     Active Substance: MUPIROCIN
     Indication: NASAL CONGESTION
  30. RITALIN [Concomitant]
     Active Substance: METHYLPHENIDATE HYDROCHLORIDE
     Indication: CEREBROVASCULAR ACCIDENT
     Dosage: 20 MG, DAILY, 10 MG TABLET BY MOUTH IN THE MORNING AND ONE 10MG TABLET AFTER LUNCH
     Route: 048
  31. WELLBUTRIN [Concomitant]
     Active Substance: BUPROPION HYDROCHLORIDE
     Indication: CEREBROVASCULAR ACCIDENT
     Dosage: 200 MG, 2X/DAY, IN THE MORNING AND AT NIGHT
     Route: 048
  32. LYRICA [Suspect]
     Active Substance: PREGABALIN
     Indication: NECK PAIN
     Dosage: 100 MG, 1X/DAY
     Route: 048
     Dates: start: 2010
  33. LYRICA [Suspect]
     Active Substance: PREGABALIN
     Dosage: 150 MG, 2X/DAY(AT AM DAY AND NIGHT)
     Route: 048
  34. PRISTIQ EXTENDED-RELEASE [Concomitant]
     Active Substance: DESVENLAFAXINE SUCCINATE
     Dosage: 100 MG, 1X/DAY(IN THE AM)
     Route: 048
  35. PB8 ACIDOPHILUS [Concomitant]
  36. HYDROCODONE- ACETAMINOPHEN [Concomitant]
     Indication: PAIN
     Dosage: UNK (HYDROCODONE BITARTRATE: 5; ACETAMINOPHEN: 325 1 OR 2)

REACTIONS (8)
  - Feeling abnormal [Unknown]
  - Fall [Unknown]
  - Memory impairment [Recovering/Resolving]
  - Feeling abnormal [Recovering/Resolving]
  - Drug ineffective [Recovering/Resolving]
  - Nerve compression [Unknown]
  - Condition aggravated [Unknown]
  - Pain [Unknown]
